FAERS Safety Report 9175510 (Version 1)
Quarter: 2013Q1

REPORT INFORMATION
  Report Type: Report from Study
  Country: DE (occurrence: DE)
  Receive Date: 20130320
  Receipt Date: 20130320
  Transmission Date: 20140127
  Serious: Yes (Hospitalization)
  Sender: FDA-Public Use
  Company Number: DE-ROCHE-1203689

PATIENT
  Sex: Female

DRUGS (3)
  1. BEVACIZUMAB [Suspect]
     Indication: OVARIAN CANCER
     Route: 042
  2. CARBOPLATIN [Concomitant]
     Indication: OVARIAN CANCER
     Route: 042
  3. PACLITAXEL [Concomitant]
     Indication: OVARIAN CANCER
     Route: 042

REACTIONS (2)
  - Lymphocele [Unknown]
  - Sepsis [Unknown]
